FAERS Safety Report 24746618 (Version 1)
Quarter: 2024Q4

REPORT INFORMATION
  Report Type: Report from Study
  Country: US (occurrence: US)
  Receive Date: 20241218
  Receipt Date: 20241218
  Transmission Date: 20250115
  Serious: Yes (Other)
  Sender: ROCHE
  Company Number: US-ROCHE-10000154946

PATIENT
  Age: 58 Year
  Sex: Female

DRUGS (1)
  1. OCREVUS [Suspect]
     Active Substance: OCRELIZUMAB
     Indication: Multiple sclerosis
     Dosage: PREVIOUS INFUSION OF OCRELIZUMAB WAS RECEIVED ON 23-AUG-2021 AND 06-SEP-2021, 28-FEB-2022 AND 09-DEC
     Route: 065

REACTIONS (4)
  - Urinary tract infection [Recovered/Resolved]
  - Osteomyelitis [Unknown]
  - Swelling [Unknown]
  - Off label use [Unknown]

NARRATIVE: CASE EVENT DATE: 20240101
